FAERS Safety Report 7537824-8 (Version None)
Quarter: 2011Q2

REPORT INFORMATION
  Report Type: 
  Country: None (occurrence: None)
  Receive Date: 20110609
  Receipt Date: 20110602
  Transmission Date: 20111010
  Serious: Yes (Other)
  Sender: FDA-Public Use
  Company Number: US-SANOFI-AVENTIS-2011SA028983

PATIENT
  Sex: Male
  Weight: 48.53 kg

DRUGS (1)
  1. LANTUS [Suspect]
     Route: 058

REACTIONS (1)
  - CONVULSION [None]
